FAERS Safety Report 8983313 (Version 1)
Quarter: 2012Q4

REPORT INFORMATION
  Report Type: 
  Country: CO (occurrence: CO)
  Receive Date: 20121224
  Receipt Date: 20121224
  Transmission Date: 20130627
  Serious: Yes (Death)
  Sender: FDA-Public Use
  Company Number: CO-SANOFI-AVENTIS-2012SA091427

PATIENT
  Age: 73 Year
  Sex: Female

DRUGS (2)
  1. LANTUS [Suspect]
     Indication: DIABETES MELLITUS
     Route: 058
     Dates: start: 201204, end: 20121006
  2. INSULIN, REGULAR [Suspect]
     Indication: DIABETES MELLITUS
     Route: 058
     Dates: end: 20121006

REACTIONS (1)
  - Acute myocardial infarction [Fatal]
